FAERS Safety Report 23911441 (Version 1)
Quarter: 2024Q2

REPORT INFORMATION
  Report Type: Spontaneous
  Country: US (occurrence: US)
  Receive Date: 20240528
  Receipt Date: 20240528
  Transmission Date: 20240716
  Serious: No
  Sender: FDA-Public Use
  Company Number: US-SA-SAC20240521001353

PATIENT
  Age: 40 Year
  Sex: Female

DRUGS (10)
  1. DUPIXENT [Suspect]
     Active Substance: DUPILUMAB
     Indication: Dermatitis atopic
     Dosage: 300 MG, QOW
     Route: 058
     Dates: start: 20220727
  2. BOTOX [Concomitant]
     Active Substance: ONABOTULINUMTOXINA
  3. BUPROPION [Concomitant]
     Active Substance: BUPROPION
  4. BUSPAR [Concomitant]
     Active Substance: BUSPIRONE HYDROCHLORIDE
  5. CYMBALTA [Concomitant]
     Active Substance: DULOXETINE HYDROCHLORIDE
  6. DEXILANT [Concomitant]
     Active Substance: DEXLANSOPRAZOLE
  7. FISH OIL [Concomitant]
     Active Substance: FISH OIL
  8. GABAPENTIN [Concomitant]
     Active Substance: GABAPENTIN
  9. VITAMIN D3 [Concomitant]
     Active Substance: CHOLECALCIFEROL
  10. XANAX [Concomitant]
     Active Substance: ALPRAZOLAM

REACTIONS (3)
  - Sleep disorder due to a general medical condition [Not Recovered/Not Resolved]
  - Skin discomfort [Not Recovered/Not Resolved]
  - Rash [Not Recovered/Not Resolved]
